FAERS Safety Report 21301466 (Version 4)
Quarter: 2023Q1

REPORT INFORMATION
  Report Type: Report from Study
  Country: US (occurrence: None)
  Receive Date: 20220907
  Receipt Date: 20230216
  Transmission Date: 20230417
  Serious: Yes (Other)
  Sender: FDA-Public Use
  Company Number: US-ROCHE-3163612

PATIENT
  Age: 69 Year
  Sex: Female
  Weight: 68 kg

DRUGS (17)
  1. PIRFENIDONE [Suspect]
     Active Substance: PIRFENIDONE
     Indication: Idiopathic pulmonary fibrosis
     Dosage: ON 02/MAR/2022 RECEIVED MOST RECENT DOSE PRIOR TO AE OF 5 MG, ON 16/AUG/2022 SHE RECEIVED PIRFERIDON
     Route: 048
     Dates: start: 2014
  2. CLOPIDOGREL [Concomitant]
     Active Substance: CLOPIDOGREL BISULFATE
     Indication: Atrial fibrillation
     Route: 048
     Dates: start: 202101
  3. CLOPIDOGREL [Concomitant]
     Active Substance: CLOPIDOGREL BISULFATE
     Indication: Deep vein thrombosis
  4. METOPROLOL SUCCINATE [Concomitant]
     Active Substance: METOPROLOL SUCCINATE
     Indication: Hypertension
     Route: 048
     Dates: start: 1991
  5. AMIODARONE [Concomitant]
     Active Substance: AMIODARONE
     Indication: Atrial fibrillation
     Route: 048
     Dates: start: 202101
  6. QUINAPRIL [Concomitant]
     Active Substance: QUINAPRIL
     Indication: Myocardial infarction
     Route: 048
     Dates: start: 2006
  7. SERTRALINE [Concomitant]
     Active Substance: SERTRALINE HYDROCHLORIDE
     Indication: Depression
     Route: 048
     Dates: start: 1991
  8. XARELTO [Concomitant]
     Active Substance: RIVAROXABAN
     Indication: Deep vein thrombosis
     Route: 048
     Dates: start: 20220618
  9. BENADRYL [Concomitant]
     Active Substance: DIPHENHYDRAMINE HYDROCHLORIDE
     Indication: Upper-airway cough syndrome
     Route: 048
     Dates: start: 20220816, end: 20220816
  10. BENADRYL [Concomitant]
     Active Substance: DIPHENHYDRAMINE HYDROCHLORIDE
     Indication: Rhinorrhoea
     Route: 042
     Dates: start: 20220816, end: 20220816
  11. BENADRYL [Concomitant]
     Active Substance: DIPHENHYDRAMINE HYDROCHLORIDE
     Indication: Anaphylactic reaction
  12. ALBUTEROL [Concomitant]
     Active Substance: ALBUTEROL
     Indication: Anaphylactic reaction
     Route: 055
     Dates: start: 20220816, end: 20220816
  13. FAMOTIDINE [Concomitant]
     Active Substance: FAMOTIDINE
     Indication: Anaphylactic reaction
     Route: 042
     Dates: start: 20220816, end: 20220816
  14. SOLU-MEDROL [Concomitant]
     Active Substance: METHYLPREDNISOLONE SODIUM SUCCINATE
     Indication: Anaphylactic reaction
     Route: 042
     Dates: start: 20220816, end: 20220816
  15. OMEPRAZOLE [Concomitant]
     Active Substance: OMEPRAZOLE
     Indication: Gastrooesophageal reflux disease
     Route: 048
     Dates: start: 1991
  16. ASPIRIN [Concomitant]
     Active Substance: ASPIRIN
     Indication: Deep vein thrombosis
     Route: 048
     Dates: start: 20220618
  17. EVOLOCUMAB [Concomitant]
     Active Substance: EVOLOCUMAB
     Indication: Hypercholesterolaemia
     Route: 058
     Dates: start: 2015

REACTIONS (1)
  - Anaphylactic reaction [Recovered/Resolved]

NARRATIVE: CASE EVENT DATE: 20220816
